FAERS Safety Report 20209394 (Version 11)
Quarter: 2025Q3

REPORT INFORMATION
  Report Type: Report from Study
  Country: JP (occurrence: JP)
  Receive Date: 20211220
  Receipt Date: 20250930
  Transmission Date: 20251020
  Serious: Yes (Hospitalization, Other)
  Sender: ABBVIE
  Company Number: JP-TAKEDA-2019TJP003231

PATIENT
  Age: 51 Year
  Sex: Male

DRUGS (34)
  1. LEUPROLIDE ACETATE [Suspect]
     Active Substance: LEUPROLIDE ACETATE
     Indication: Bulbospinal muscular atrophy congenital
     Dosage: 11.25 MILLIGRAM, Q3MONTHS
     Route: 058
     Dates: start: 20181217
  2. DIPHENHYDRAMINE [Concomitant]
     Active Substance: DIPHENHYDRAMINE
     Indication: Product used for unknown indication
     Route: 065
     Dates: start: 20240807
  3. AMBROXOL HYDROCHLORIDE [Concomitant]
     Active Substance: AMBROXOL HYDROCHLORIDE
     Indication: Product used for unknown indication
     Dosage: 15 MILLIGRAM, TID
     Route: 065
  4. AMBROXOL HYDROCHLORIDE [Concomitant]
     Active Substance: AMBROXOL HYDROCHLORIDE
     Indication: Product used for unknown indication
     Route: 065
  5. CARBOCYSTEINE [Concomitant]
     Active Substance: CARBOCYSTEINE
     Indication: Product used for unknown indication
     Dosage: 500 MILLIGRAM, TID
     Route: 065
  6. CARBOCYSTEINE [Concomitant]
     Active Substance: CARBOCYSTEINE
     Indication: Product used for unknown indication
     Route: 065
  7. METHYLCOBALAMIN [Concomitant]
     Active Substance: METHYLCOBALAMIN
     Indication: Bulbospinal muscular atrophy congenital
     Dosage: 500 MICROGRAM, TID
     Route: 065
  8. METHYLCOBALAMIN [Concomitant]
     Active Substance: METHYLCOBALAMIN
     Indication: Bulbospinal muscular atrophy congenital
     Route: 065
  9. TEPRENONE [Concomitant]
     Active Substance: TEPRENONE
     Indication: Gastrooesophageal reflux disease
     Dosage: 50 MILLIGRAM, BID
     Route: 065
     Dates: end: 20240220
  10. TEPRENONE [Concomitant]
     Active Substance: TEPRENONE
     Indication: Gastrooesophageal reflux disease
     Dosage: 50 MILLIGRAM, BID
     Route: 065
     Dates: end: 20240220
  11. MAGNESIUM OXIDE [Concomitant]
     Active Substance: MAGNESIUM OXIDE
     Indication: Constipation
     Dosage: 330 MILLIGRAM, BID
     Route: 065
     Dates: end: 20240807
  12. MAGNESIUM OXIDE [Concomitant]
     Active Substance: MAGNESIUM OXIDE
     Indication: Constipation
     Dosage: 330 MILLIGRAM, BID
     Route: 065
     Dates: end: 20240807
  13. AMLODIPINE BESYLATE\TELMISARTAN [Concomitant]
     Active Substance: AMLODIPINE BESYLATE\TELMISARTAN
     Indication: Product used for unknown indication
     Dosage: 1 DOSAGE FORM, QD
     Route: 065
  14. CLARITIN [Concomitant]
     Active Substance: LORATADINE
     Indication: Rhinitis allergic
     Dosage: 10 MILLIGRAM, QD
     Route: 065
  15. SINGULAIR [Concomitant]
     Active Substance: MONTELUKAST SODIUM
     Indication: Product used for unknown indication
     Dosage: 10 MILLIGRAM, QD
     Route: 065
  16. VOLTAREN [Concomitant]
     Active Substance: DICLOFENAC SODIUM
     Indication: Extremity contracture
     Route: 065
  17. VOLTAREN [Concomitant]
     Active Substance: DICLOFENAC SODIUM
     Indication: Extremity contracture
     Dosage: UNK UNK, TID
     Route: 065
  18. Rinderon [Concomitant]
     Indication: Impetigo
     Route: 065
     Dates: end: 20240306
  19. Rinderon [Concomitant]
     Indication: Impetigo
     Route: 065
     Dates: end: 20240306
  20. Rinderon [Concomitant]
     Indication: Impetigo
     Route: 065
  21. Posterisan forte [Concomitant]
     Indication: Haemorrhoids
     Dosage: UNK UNK, BID
     Route: 065
  22. Posterisan forte [Concomitant]
     Indication: Haemorrhoids
     Dosage: UNK UNK, BID
     Route: 065
  23. GENTAMICIN SULFATE [Concomitant]
     Active Substance: GENTAMICIN SULFATE
     Indication: Impetigo
     Route: 065
     Dates: end: 20240306
  24. GENTAMICIN SULFATE [Concomitant]
     Active Substance: GENTAMICIN SULFATE
     Indication: Impetigo
     Route: 065
     Dates: end: 20240306
  25. GENTAMICIN SULFATE [Concomitant]
     Active Substance: GENTAMICIN SULFATE
     Indication: Impetigo
     Route: 065
  26. NIZORAL [Concomitant]
     Active Substance: KETOCONAZOLE
     Indication: Tinea infection
     Route: 065
     Dates: end: 20240220
  27. NIZORAL [Concomitant]
     Active Substance: KETOCONAZOLE
     Indication: Tinea infection
     Route: 065
     Dates: end: 20240220
  28. NIZORAL [Concomitant]
     Active Substance: KETOCONAZOLE
     Indication: Tinea infection
     Route: 065
  29. ENSURE [Concomitant]
     Active Substance: AMINO ACIDS\DEXTROSE\ELECTROLYTES NOS\SOYBEAN OIL\VITAMINS
     Indication: Dysphagia
     Dosage: 250 MILLILITER, QD
     Route: 065
  30. TRAMCET [Concomitant]
     Active Substance: ACETAMINOPHEN\TRAMADOL
     Indication: Peripheral ischaemia
     Dosage: 1 DOSAGE FORM, TID
     Route: 065
  31. TRAMCET [Concomitant]
     Active Substance: ACETAMINOPHEN\TRAMADOL
     Indication: Peripheral ischaemia
     Route: 065
  32. LEVOFLOXACIN [Concomitant]
     Active Substance: LEVOFLOXACIN
     Indication: Product used for unknown indication
     Route: 065
     Dates: start: 20201207, end: 20201213
  33. REBAMIPIDE [Concomitant]
     Active Substance: REBAMIPIDE
     Indication: Product used for unknown indication
     Route: 065
     Dates: start: 20240221
  34. CELECOXIB [Concomitant]
     Active Substance: CELECOXIB
     Indication: Product used for unknown indication
     Route: 065
     Dates: start: 20240508

REACTIONS (11)
  - Colon cancer [Recovered/Resolved]
  - Nausea [Recovered/Resolved]
  - Vomiting [Recovered/Resolved]
  - Hyper HDL cholesterolaemia [Recovered/Resolved]
  - Hyponatraemia [Recovered/Resolved]
  - Decubitus ulcer [Recovering/Resolving]
  - Hypertriglyceridaemia [Recovering/Resolving]
  - Anaemia [Recovered/Resolved]
  - Constipation [Not Recovered/Not Resolved]
  - Weight decreased [Not Recovered/Not Resolved]
  - Oedema peripheral [Recovered/Resolved]

NARRATIVE: CASE EVENT DATE: 20190204
